FAERS Safety Report 11457992 (Version 1)
Quarter: 2015Q3

REPORT INFORMATION
  Report Type: Spontaneous
  Country: US (occurrence: None)
  Receive Date: 20150903
  Receipt Date: 20150903
  Transmission Date: 20151125
  Serious: Yes (Life-Threatening)
  Sender: FDA-Public Use
  Company Number: None

PATIENT
  Age: 42 Year
  Sex: Female
  Weight: 95.26 kg

DRUGS (2)
  1. BUPROPION 300 MG [Suspect]
     Active Substance: BUPROPION
     Indication: BIPOLAR II DISORDER
     Dosage: TAKEN BY MOUTH( 1 PILL)
     Dates: start: 20130601, end: 20130801
  2. BUPROPION 300 MG [Suspect]
     Active Substance: BUPROPION
     Indication: MAJOR DEPRESSION
     Dosage: TAKEN BY MOUTH( 1 PILL)
     Dates: start: 20130601, end: 20130801

REACTIONS (8)
  - Product substitution issue [None]
  - Activities of daily living impaired [None]
  - Hypersomnia [None]
  - Irritability [None]
  - Mood altered [None]
  - Crying [None]
  - Frustration [None]
  - Suicidal ideation [None]

NARRATIVE: CASE EVENT DATE: 20130601
